FAERS Safety Report 6766683-6 (Version None)
Quarter: 2010Q2

REPORT INFORMATION
  Report Type: 
  Country: None (occurrence: None)
  Receive Date: 20100611
  Receipt Date: 20100430
  Transmission Date: 20101027
  Serious: Yes (Death, Life-Threatening, Other)
  Sender: FDA-Public Use
  Company Number: US-BAXTER-2010BH008726

PATIENT
  Age: 45 Year
  Sex: Female

DRUGS (40)
  1. HEPARIN SODIUM [Suspect]
     Indication: PULMONARY HYPERTENSION
     Route: 065
     Dates: start: 20100308, end: 20100308
  2. HEPARIN SODIUM [Suspect]
     Indication: CORONARY ARTERY OCCLUSION
     Route: 065
     Dates: start: 20100308, end: 20100308
  3. HEPARIN SODIUM [Suspect]
     Route: 065
     Dates: start: 20080311, end: 20080311
  4. HEPARIN SODIUM [Suspect]
     Route: 065
     Dates: start: 20080311, end: 20080311
  5. HEPARIN SODIUM [Suspect]
     Route: 065
     Dates: start: 20080312, end: 20080312
  6. HEPARIN SODIUM [Suspect]
     Route: 065
     Dates: start: 20080312, end: 20080312
  7. HEPARIN SODIUM [Suspect]
     Route: 065
     Dates: start: 20080314, end: 20080314
  8. HEPARIN SODIUM [Suspect]
     Route: 065
     Dates: start: 20080314, end: 20080314
  9. HEPARIN SODIUM [Suspect]
     Route: 065
     Dates: start: 20080315, end: 20080315
  10. HEPARIN SODIUM [Suspect]
     Route: 065
     Dates: start: 20080315, end: 20080315
  11. HEPARIN SODIUM [Suspect]
     Route: 065
     Dates: start: 20080316, end: 20080316
  12. HEPARIN SODIUM [Suspect]
     Route: 065
     Dates: start: 20080316, end: 20080316
  13. HEPARIN SODIUM [Suspect]
     Route: 065
     Dates: start: 20080319, end: 20080319
  14. HEPARIN SODIUM [Suspect]
     Route: 065
     Dates: start: 20080319, end: 20080319
  15. HEPARIN SODIUM [Suspect]
     Route: 065
     Dates: start: 20080321, end: 20080321
  16. HEPARIN SODIUM [Suspect]
     Route: 065
     Dates: start: 20080321, end: 20080321
  17. WARFARIN [Concomitant]
     Indication: DRUG USE FOR UNKNOWN INDICATION
     Route: 065
  18. DIGOXIN [Concomitant]
     Indication: DRUG USE FOR UNKNOWN INDICATION
     Route: 065
  19. LEVOTHYROXINE SODIUM [Concomitant]
     Indication: DRUG USE FOR UNKNOWN INDICATION
     Route: 065
  20. BOSENTAN [Concomitant]
     Indication: DRUG USE FOR UNKNOWN INDICATION
     Route: 065
  21. ASPIRIN [Concomitant]
     Indication: DRUG USE FOR UNKNOWN INDICATION
     Route: 065
  22. HYDROCHLOROTHIAZIDE [Concomitant]
     Indication: DRUG USE FOR UNKNOWN INDICATION
     Route: 065
  23. MIDAZOLAM HCL [Concomitant]
     Indication: DRUG USE FOR UNKNOWN INDICATION
     Route: 065
  24. FENTANYL [Concomitant]
     Indication: DRUG USE FOR UNKNOWN INDICATION
     Route: 065
  25. LEVOFLOXACIN [Concomitant]
     Indication: DRUG USE FOR UNKNOWN INDICATION
     Route: 065
  26. POTASSIUM CHLORIDE [Concomitant]
     Indication: DRUG USE FOR UNKNOWN INDICATION
     Route: 065
  27. SODIUM CHLORIDE [Concomitant]
     Indication: DRUG USE FOR UNKNOWN INDICATION
     Route: 065
  28. VECURONIUM BROMIDE [Concomitant]
     Indication: DRUG USE FOR UNKNOWN INDICATION
     Route: 065
  29. FAMOTIDINE [Concomitant]
     Indication: DRUG USE FOR UNKNOWN INDICATION
     Route: 065
  30. PIPERACILLIN [Concomitant]
     Indication: DRUG USE FOR UNKNOWN INDICATION
     Route: 065
  31. PROPOFOL [Concomitant]
     Indication: DRUG USE FOR UNKNOWN INDICATION
     Route: 065
  32. CALCIUM GLUCONATE [Concomitant]
     Indication: DRUG USE FOR UNKNOWN INDICATION
     Route: 065
  33. VANCOMYCIN [Concomitant]
     Indication: DRUG USE FOR UNKNOWN INDICATION
     Route: 065
  34. EPOPROSTENOL SODIUM [Concomitant]
     Indication: DRUG USE FOR UNKNOWN INDICATION
     Route: 065
  35. RACEPINEPHRINE INHALATION SOLUTION USP 26 [Concomitant]
     Indication: DRUG USE FOR UNKNOWN INDICATION
     Route: 065
  36. ACETAMINOPHEN [Concomitant]
     Indication: DRUG USE FOR UNKNOWN INDICATION
     Route: 065
  37. FUROSEMIDE [Concomitant]
     Indication: DRUG USE FOR UNKNOWN INDICATION
     Route: 065
  38. DOPAMINE HCL [Concomitant]
     Indication: DRUG USE FOR UNKNOWN INDICATION
     Route: 065
  39. MAGNESIUM SULFATE [Concomitant]
     Indication: DRUG USE FOR UNKNOWN INDICATION
     Route: 065
  40. ESOMEPRAZOLE [Concomitant]
     Indication: DRUG USE FOR UNKNOWN INDICATION
     Route: 065

REACTIONS (5)
  - CARDIAC ARREST [None]
  - CARDIAC SEPTAL DEFECT [None]
  - HYPOTENSION [None]
  - MULTI-ORGAN FAILURE [None]
  - RENAL FAILURE [None]
